FAERS Safety Report 19731208 (Version 1)
Quarter: 2021Q3

REPORT INFORMATION
  Report Type: Spontaneous
  Country: NL (occurrence: NL)
  Receive Date: 20210821
  Receipt Date: 20210821
  Transmission Date: 20211014
  Serious: Yes (Other)
  Sender: FDA-Public Use
  Company Number: NVSC2021NL184110

PATIENT
  Sex: Male

DRUGS (1)
  1. TRAMETINIB [Suspect]
     Active Substance: TRAMETINIB
     Indication: BRAIN NEOPLASM
     Dosage: UNK
     Route: 065

REACTIONS (6)
  - Rash [Unknown]
  - Visual impairment [Unknown]
  - Product use issue [Unknown]
  - Optic nerve compression [Unknown]
  - Blindness unilateral [Unknown]
  - Optic atrophy [Unknown]
